FAERS Safety Report 18587961 (Version 2)
Quarter: 2021Q1

REPORT INFORMATION
  Report Type: Spontaneous
  Country: US (occurrence: US)
  Receive Date: 20201207
  Receipt Date: 20210105
  Transmission Date: 20210419
  Serious: Yes (Hospitalization)
  Sender: FDA-Public Use
  Company Number: US-TEVA-2020-US-1856257

PATIENT
  Age: 68 Year
  Sex: Female

DRUGS (2)
  1. HYDROXYCHLOROQUINE [Suspect]
     Active Substance: HYDROXYCHLOROQUINE
     Indication: CUTANEOUS SARCOIDOSIS
     Route: 065
  2. ALBUTEROL. [Concomitant]
     Active Substance: ALBUTEROL
     Indication: ASTHMA
     Route: 050

REACTIONS (7)
  - Acute generalised exanthematous pustulosis [Recovered/Resolved]
  - Varicella zoster virus infection [Recovering/Resolving]
  - Emotional distress [Recovering/Resolving]
  - Dyschezia [Recovered/Resolved]
  - Dysuria [Recovering/Resolving]
  - Anxiety [Recovering/Resolving]
  - Stevens-Johnson syndrome [Recovered/Resolved]
